FAERS Safety Report 5739649-2 (Version None)
Quarter: 2008Q2

REPORT INFORMATION
  Report Type: 
  Country: None (occurrence: None)
  Receive Date: 20080513
  Receipt Date: 20071206
  Transmission Date: 20081010
  Serious: Yes (Other)
  Sender: FDA-Public Use
  Company Number: 07GB001048

PATIENT
  Age: 18 Year
  Sex: Female

DRUGS (1)
  1. PAROXETINE HCL [Suspect]
     Indication: DRUG USE FOR UNKNOWN INDICATION
     Dosage: 20 MG, QD; 30 MG; 20 MG
     Dates: start: 20011101

REACTIONS (8)
  - ABNORMAL BEHAVIOUR [None]
  - AFFECT LABILITY [None]
  - AGGRESSION [None]
  - AGITATION [None]
  - DRUG WITHDRAWAL SYNDROME [None]
  - PHYSICAL ASSAULT [None]
  - SOMNOLENCE [None]
  - SUICIDE ATTEMPT [None]
